FAERS Safety Report 15093946 (Version 1)
Quarter: 2018Q2

REPORT INFORMATION
  Report Type: Report from Study
  Country: ES (occurrence: ES)
  Receive Date: 20180629
  Receipt Date: 20180629
  Transmission Date: 20180711
  Serious: Yes (Hospitalization, Other)
  Sender: FDA-Public Use
  Company Number: ES-PFIZER INC-2018264672

PATIENT
  Age: 65 Year
  Sex: Male

DRUGS (4)
  1. RAMIPRIL. [Suspect]
     Active Substance: RAMIPRIL
     Indication: HYPERTENSION
     Dosage: 5 MG, DAILY
     Route: 048
     Dates: start: 20160419, end: 20171006
  2. AMOXICILLIN/CLAVULANIC ACID [Concomitant]
     Active Substance: AMOXICILLIN\CLAVULANIC ACID
     Indication: PROSTATITIS
     Dosage: UNK
     Dates: start: 20170821, end: 20170908
  3. MICOFENOLATO DE MOFETILO ACCORD [Interacting]
     Active Substance: MYCOPHENOLATE MOFETIL
     Indication: LIVER TRANSPLANT
     Dosage: 1 MG, DAILY
     Route: 048
     Dates: start: 20141212
  4. TACROLIMUS. [Interacting]
     Active Substance: TACROLIMUS
     Indication: LIVER TRANSPLANT
     Dosage: 6 MG, DAILY
     Route: 048
     Dates: start: 20141212

REACTIONS (2)
  - Acute kidney injury [Recovered/Resolved]
  - Drug interaction [Unknown]

NARRATIVE: CASE EVENT DATE: 201709
